FAERS Safety Report 23819449 (Version 13)
Quarter: 2024Q4

REPORT INFORMATION
  Report Type: Spontaneous
  Country: CA (occurrence: CA)
  Receive Date: 20240506
  Receipt Date: 20241226
  Transmission Date: 20250114
  Serious: Yes (Hospitalization, Other)
  Sender: CELLTRION
  Company Number: CA-CELLTRION INC.-2024CA010219

PATIENT

DRUGS (6)
  1. INFLECTRA [Suspect]
     Active Substance: INFLIXIMAB-DYYB
     Indication: Crohn^s disease
     Dosage: 318 MG, AT WEEK Q 0, 2 AND 6 THEN EVERY 8 WEEKS
     Route: 042
     Dates: start: 20240408
  2. INFLECTRA [Suspect]
     Active Substance: INFLIXIMAB-DYYB
     Dosage: 318 MG, AFTER 5 WEEKS AND 1 DAY (PRESCRIBED FOR WEEK 2 INDUCTION DOSE)
     Route: 042
     Dates: start: 20240514
  3. INFLECTRA [Suspect]
     Active Substance: INFLIXIMAB-DYYB
     Dosage: 370MG AFTER 3 WEEKS AND 6 DAYS (WEEK 6) (PRESCRIBED WAS 318 MG, Q 0, 2 AND 6 THEN Q 8 WEEKS)
     Route: 042
     Dates: start: 20240610
  4. INFLECTRA [Suspect]
     Active Substance: INFLIXIMAB-DYYB
     Dosage: 600 MG 19 WEEKS AND 2 DAYS (10MG/KG EVERY 4 WEEKS)
     Route: 042
     Dates: start: 20241023
  5. INFLECTRA [Suspect]
     Active Substance: INFLIXIMAB-DYYB
     Dosage: 600 MG, 3 WEEKS AND 5 DAYS (10 MG/KG, EVERY 4 WEEK)
     Route: 042
     Dates: start: 20241118
  6. INFLECTRA [Suspect]
     Active Substance: INFLIXIMAB-DYYB
     Dosage: 600 MG (10 MG/KG, EVERY 4 WEEKS)
     Route: 042
     Dates: start: 20241216

REACTIONS (15)
  - Vomiting [Unknown]
  - Illness [Unknown]
  - Shock [Unknown]
  - Intestinal obstruction [Recovering/Resolving]
  - Condition aggravated [Not Recovered/Not Resolved]
  - Drug specific antibody present [Unknown]
  - Arthralgia [Recovered/Resolved]
  - Weight decreased [Not Recovered/Not Resolved]
  - Pallor [Not Recovered/Not Resolved]
  - Tachycardia [Not Recovered/Not Resolved]
  - Nausea [Recovered/Resolved]
  - Weight increased [Unknown]
  - Cystitis [Recovered/Resolved]
  - Off label use [Unknown]
  - Incorrect dose administered [Unknown]

NARRATIVE: CASE EVENT DATE: 20240101
